FAERS Safety Report 24456728 (Version 2)
Quarter: 2025Q3

REPORT INFORMATION
  Report Type: Spontaneous
  Country: US (occurrence: US)
  Receive Date: 20241017
  Receipt Date: 20250802
  Transmission Date: 20251020
  Serious: Yes (Other)
  Sender: ALEXION PHARMACEUTICALS
  Company Number: US-AstraZeneca-CH-00712977A

PATIENT
  Sex: Female

DRUGS (1)
  1. FARXIGA [Suspect]
     Active Substance: DAPAGLIFLOZIN PROPANEDIOL
     Dates: start: 20240813, end: 20240822

REACTIONS (7)
  - Therapy interrupted [Unknown]
  - Micturition urgency [Unknown]
  - Vulvovaginal swelling [Unknown]
  - Pruritus [Recovering/Resolving]
  - Fungal infection [Unknown]
  - Cataract [Unknown]
  - Injection site reaction [Unknown]
